FAERS Safety Report 9124852 (Version 1)
Quarter: 2013Q1

REPORT INFORMATION
  Report Type: Spontaneous
  Country: US (occurrence: US)
  Receive Date: 20130117
  Receipt Date: 20130117
  Transmission Date: 20140127
  Serious: No
  Sender: FDA-Public Use
  Company Number: US-009507513-1209USA001637

PATIENT
  Sex: Female

DRUGS (3)
  1. AZASITE [Suspect]
     Indication: EYE SWELLING
     Dosage: 1 DROP IN EACH TWICE A DAY
     Route: 061
     Dates: start: 20120901, end: 20120902
  2. AZASITE [Suspect]
     Indication: EYE PRURITUS
     Dosage: 1 DROP IN EACH EYE FOR 30 DAYS
     Route: 061
     Dates: start: 20120903, end: 20121001
  3. AZASITE [Suspect]
     Indication: MEIBOMIANITIS

REACTIONS (6)
  - Drug dose omission [Unknown]
  - Product packaging quantity issue [Unknown]
  - Inappropriate schedule of drug administration [Unknown]
  - Incorrect route of drug administration [Unknown]
  - Product quality issue [Unknown]
  - No adverse event [Unknown]
